FAERS Safety Report 17162623 (Version 1)
Quarter: 2019Q4

REPORT INFORMATION
  Report Type: Spontaneous
  Country: US (occurrence: US)
  Receive Date: 20191216
  Receipt Date: 20191216
  Transmission Date: 20200122
  Serious: Yes (Hospitalization)
  Sender: FDA-Public Use
  Company Number: None

PATIENT
  Age: 59 Year

DRUGS (22)
  1. PREMARIN INJ 25MG [Concomitant]
     Dates: start: 20160301
  2. MIRALAX POW 3350 NF [Concomitant]
     Dates: start: 20160301
  3. KRILL OIL CAP 1000MG [Concomitant]
     Dates: start: 20160301
  4. CYMBALTA CAP 20MG [Concomitant]
     Dates: start: 20160301
  5. NAPROXEN TAB 500MG [Concomitant]
     Active Substance: NAPROXEN
     Dates: start: 20110906
  6. ZOLPDEM TAB 10MG [Concomitant]
     Dates: start: 20110906
  7. MOBIC [Concomitant]
     Active Substance: MELOXICAM
  8. CYMBALTA CAP 60MG [Concomitant]
     Dates: start: 20110906
  9. NORTRIPTYLIN CAP 10MG [Concomitant]
     Dates: start: 20110906
  10. METHOTREXATE TAB 2.5MG [Concomitant]
     Active Substance: METHOTREXATE
     Dates: start: 20110906
  11. VITAMIN D3 CAP 2000 UNIT [Concomitant]
     Dates: start: 20160301
  12. FOLIC ACID TAB 1MG [Concomitant]
     Dates: start: 20110906
  13. PREMARIN TAB 0.3MG [Concomitant]
     Dates: start: 20110906
  14. HUMIRA [Suspect]
     Active Substance: ADALIMUMAB
     Indication: ANKYLOSING SPONDYLITIS
     Dosage: ?          OTHER FREQUENCY:BI-WEEKLY;?
     Route: 058
     Dates: start: 20190412
  15. HYDROCO/APAP TAB 5-325MG [Concomitant]
     Active Substance: ACETAMINOPHEN\HYDROCODONE
     Dates: start: 20160301
  16. METHOTREXATE TAB 2.5MG [Concomitant]
     Active Substance: METHOTREXATE
     Dates: start: 20160301
  17. HUMIRA KIT 40MG/0.8 [Concomitant]
     Dates: start: 20160301
  18. FOLIC ACID TAB 1MG [Concomitant]
     Dates: start: 20160301
  19. OYST-CAL D TAB 250MG [Concomitant]
     Dates: start: 20160301
  20. CYMBALTA CAP 30MG [Concomitant]
     Dates: start: 20110906
  21. MELOXICAM TAB 15MG [Concomitant]
     Active Substance: MELOXICAM
     Dates: start: 20160301
  22. CALCIUM TAB 500MG [Concomitant]
     Dates: start: 20110906

REACTIONS (1)
  - Lower limb fracture [None]

NARRATIVE: CASE EVENT DATE: 20191101
